FAERS Safety Report 18915980 (Version 1)
Quarter: 2021Q1

REPORT INFORMATION
  Report Type: Spontaneous
  Country: US (occurrence: US)
  Receive Date: 20210219
  Receipt Date: 20210219
  Transmission Date: 20210420
  Serious: No
  Sender: FDA-Public Use
  Company Number: US-ASTRAZENECA-2021A065261

PATIENT

DRUGS (1)
  1. RHINOCORT [Suspect]
     Active Substance: BUDESONIDE
     Indication: RHINITIS
     Dosage: ONE SPRAY IN EACH NOSTRIL EVERY DAY
     Route: 045
     Dates: start: 20201207

REACTIONS (3)
  - Therapeutic response unexpected [Unknown]
  - Product delivery mechanism issue [Unknown]
  - Product use in unapproved indication [Unknown]

NARRATIVE: CASE EVENT DATE: 20201207
